FAERS Safety Report 13344383 (Version 4)
Quarter: 2017Q1

REPORT INFORMATION
  Report Type: Spontaneous
  Country: AT (occurrence: AT)
  Receive Date: 20170317
  Receipt Date: 20170329
  Transmission Date: 20170428
  Serious: Yes (Hospitalization)
  Sender: FDA-Public Use
  Company Number: AT-CIPLA LTD.-2017AT04128

PATIENT

DRUGS (15)
  1. AMLODIPINE [Suspect]
     Active Substance: AMLODIPINE BESYLATE
     Dosage: 5 MG PER DAY
     Route: 065
  2. NAPROXEN. [Suspect]
     Active Substance: NAPROXEN
     Dosage: UNK, UP TO 4 TIMES PER DAY
     Route: 065
  3. ASPIRIN. [Suspect]
     Active Substance: ASPIRIN
     Dosage: UNK
     Route: 065
  4. TRAMADOL. [Suspect]
     Active Substance: TRAMADOL
     Dosage: 100 MG PER DAY
     Route: 065
  5. METFORMIN [Suspect]
     Active Substance: METFORMIN HYDROCHLORIDE
     Dosage: 2000 MG PER DAY
     Route: 065
  6. FUROSEMIDE. [Suspect]
     Active Substance: FUROSEMIDE
     Dosage: 40 MG PER DAY
     Route: 065
  7. AMOXICILLIN. [Suspect]
     Active Substance: AMOXICILLIN
     Indication: ANTIBIOTIC THERAPY
     Dosage: UNK
     Route: 065
  8. NICORANDIL [Suspect]
     Active Substance: NICORANDIL
     Dosage: 20 MG PER DAY
     Route: 065
  9. DABIGATRAN [Suspect]
     Active Substance: DABIGATRAN
     Indication: ANTICOAGULANT THERAPY
     Dosage: UNK
     Route: 065
  10. BISOPROLOL [Suspect]
     Active Substance: BISOPROLOL
     Dosage: 7.5 MG PER DAY
     Route: 065
  11. DICLOFENAC [Suspect]
     Active Substance: DICLOFENAC
     Dosage: UNK, UP TO 4 TIMES PER DAY
     Route: 065
  12. TIZANIDINE. [Suspect]
     Active Substance: TIZANIDINE
     Dosage: 2 MG PER DAY
     Route: 065
  13. ATORVASTATIN [Suspect]
     Active Substance: ATORVASTATIN
     Dosage: 80 MG PER DAY
     Route: 065
  14. VALSARTAN. [Suspect]
     Active Substance: VALSARTAN
     Dosage: 160 MG PER DAY
     Route: 065
  15. DABIGATRAN [Suspect]
     Active Substance: DABIGATRAN
     Dosage: 300 MG PER DAY
     Route: 065

REACTIONS (9)
  - Acute kidney injury [Recovered/Resolved]
  - Drug ineffective [Unknown]
  - Bronchitis [Unknown]
  - Viral infection [Unknown]
  - Atrial fibrillation [Unknown]
  - Gastritis haemorrhagic [Unknown]
  - Pericardial haemorrhage [Unknown]
  - Mastitis [Unknown]
  - Ventricular hypokinesia [Unknown]
